FAERS Safety Report 21763409 (Version 3)
Quarter: 2024Q4

REPORT INFORMATION
  Report Type: Report from Study
  Country: US (occurrence: US)
  Receive Date: 20221221
  Receipt Date: 20241009
  Transmission Date: 20250115
  Serious: Yes (Other)
  Sender: ABBVIE
  Company Number: US-ABBVIE-22K-163-4528308-00

PATIENT
  Sex: Female

DRUGS (5)
  1. IMBRUVICA [Suspect]
     Active Substance: IBRUTINIB
     Indication: Chronic lymphocytic leukaemia
     Route: 048
     Dates: start: 20240927
  2. IMBRUVICA [Suspect]
     Active Substance: IBRUTINIB
  3. IMBRUVICA [Suspect]
     Active Substance: IBRUTINIB
     Indication: Chronic lymphocytic leukaemia
     Route: 048
     Dates: start: 202010
  4. IRON [Concomitant]
     Active Substance: IRON
     Indication: Product used for unknown indication
     Dosage: PILLS
  5. POTASSIUM [Concomitant]
     Active Substance: POTASSIUM
     Indication: Product used for unknown indication

REACTIONS (6)
  - Skin cancer [Unknown]
  - Product use complaint [Unknown]
  - Dysphagia [Unknown]
  - Increased viscosity of upper respiratory secretion [Unknown]
  - Aphthous ulcer [Unknown]
  - Cardiac disorder [Unknown]
